FAERS Safety Report 10917819 (Version 1)
Quarter: 2015Q1

REPORT INFORMATION
  Report Type: Spontaneous
  Country: IN (occurrence: IN)
  Receive Date: 20150316
  Receipt Date: 20150316
  Transmission Date: 20150721
  Serious: Yes (Other)
  Sender: FDA-Public Use
  Company Number: IN-GLAXOSMITHKLINE-IN2015GSK032592

PATIENT
  Age: 46 Year
  Sex: Male

DRUGS (4)
  1. FLUOXETINE [Suspect]
     Active Substance: FLUOXETINE\FLUOXETINE HYDROCHLORIDE
     Indication: BACK PAIN
     Dosage: 40 MG, QD
  2. ONDANSETRON [Suspect]
     Active Substance: ONDANSETRON
     Indication: VOMITING
  3. PARACETAMOL + TRAMADOL HYDROCHLORIDE [Suspect]
     Active Substance: ACETAMINOPHEN\TRAMADOL HYDROCHLORIDE
     Indication: BACK PAIN
     Dosage: 37.5/325, MG, UNK
  4. ONDANSETRON [Suspect]
     Active Substance: ONDANSETRON
     Indication: NAUSEA
     Dosage: 8 MG, BID

REACTIONS (8)
  - Serotonin syndrome [Recovered/Resolved]
  - Tachycardia [Recovered/Resolved]
  - Mydriasis [Recovered/Resolved]
  - Postural tremor [Recovered/Resolved]
  - Restlessness [Recovered/Resolved]
  - Headache [Recovered/Resolved]
  - Sleep disorder [Recovered/Resolved]
  - Body temperature increased [Recovered/Resolved]
